FAERS Safety Report 4782470-2 (Version None)
Quarter: 2005Q3

REPORT INFORMATION
  Report Type: 
  Country: None (occurrence: None)
  Receive Date: 20050929
  Receipt Date: 20041202
  Transmission Date: 20060218
  Serious: Yes (Other)
  Sender: FDA-Public Use
  Company Number: 389017

PATIENT
  Age: 82 Year
  Sex: Female

DRUGS (5)
  1. COREG [Suspect]
     Indication: HYPERTENSION
     Dosage: 3.125MG PER DAY
     Route: 048
     Dates: start: 20041201
  2. HEPARIN [Concomitant]
  3. DIOVAN [Concomitant]
  4. ZOCOR [Concomitant]
  5. PEPCID [Concomitant]

REACTIONS (5)
  - ANAPHYLACTOID REACTION [None]
  - DYSPNOEA [None]
  - FACE OEDEMA [None]
  - LARYNGEAL OEDEMA [None]
  - THROAT TIGHTNESS [None]
